FAERS Safety Report 24586017 (Version 2)
Quarter: 2024Q4

REPORT INFORMATION
  Report Type: Report from Study
  Country: CH (occurrence: CH)
  Receive Date: 20241106
  Receipt Date: 20241106
  Transmission Date: 20250115
  Serious: No
  Sender: TRAVERE THERAPEUTICS
  Company Number: CH-Vifor (International) Inc.-VIT-2024-07921

PATIENT
  Sex: Female

DRUGS (1)
  1. FILSPARI [Suspect]
     Active Substance: SPARSENTAN
     Indication: Product used for unknown indication
     Dosage: DOSE OF 200 MG WAS OBTAINED BY DIVIDING THE 400 MG TABLET
     Route: 065

REACTIONS (3)
  - Fatigue [Unknown]
  - Product availability issue [Unknown]
  - Wrong technique in product usage process [Unknown]
